FAERS Safety Report 20841070 (Version 5)
Quarter: 2024Q4

REPORT INFORMATION
  Report Type: Report from Study
  Country: US (occurrence: US)
  Receive Date: 20220517
  Receipt Date: 20241014
  Transmission Date: 20250114
  Serious: Yes (Death, Hospitalization)
  Sender: NOVARTIS
  Company Number: US-NOVARTISTESTPH-NVSC2022US113683

PATIENT
  Sex: Female
  Weight: 74 kg

DRUGS (2)
  1. TAFINLAR [Suspect]
     Active Substance: DABRAFENIB MESYLATE
     Indication: Non-small cell lung cancer
     Dosage: 75 MG
     Route: 048
     Dates: start: 20220429, end: 20240527
  2. MEKINIST [Suspect]
     Active Substance: TRAMETINIB DIMETHYL SULFOXIDE
     Indication: Non-small cell lung cancer
     Dosage: 2 MG
     Route: 048
     Dates: start: 20220429, end: 20220527

REACTIONS (4)
  - Non-small cell lung cancer [Fatal]
  - Pneumonia [Fatal]
  - Nausea [Unknown]
  - Constipation [Unknown]
